FAERS Safety Report 8246050-9 (Version None)
Quarter: 2012Q1

REPORT INFORMATION
  Report Type: 
  Country: None (occurrence: None)
  Receive Date: 20120328
  Receipt Date: 20120328
  Transmission Date: 20120608
  Serious: Yes (Other)
  Sender: FDA-Public Use
  Company Number: None

PATIENT
  Age: 74 Year
  Sex: Female
  Weight: 70.3075 kg

DRUGS (1)
  1. RECLAST [Suspect]
     Dosage: YEARLY DOSE 1 042
     Dates: start: 20090824

REACTIONS (9)
  - ATRIAL FIBRILLATION [None]
  - NIGHTMARE [None]
  - GIARDIASIS [None]
  - ABDOMINAL PAIN [None]
  - APHAGIA [None]
  - ULCER [None]
  - FLATULENCE [None]
  - FATIGUE [None]
  - INFLUENZA LIKE ILLNESS [None]
